FAERS Safety Report 9204921 (Version 1)
Quarter: 2013Q1

REPORT INFORMATION
  Report Type: Spontaneous
  Country: US (occurrence: None)
  Receive Date: 20120709
  Receipt Date: 20120709
  Transmission Date: 20140127
  Serious: Yes (Other)
  Sender: FDA-Public Use
  Company Number: PHEH2012US000602

PATIENT
  Age: 77 Year
  Sex: Female
  Weight: 67 kg

DRUGS (9)
  1. GLEEVEC (IMATINIB) UNKNOWN [Suspect]
     Indication: CHRONIC MYELOID LEUKAEMIA
     Dates: start: 2007
  2. ARIMIDEX (ANASTROZOLE) [Concomitant]
  3. COUMADIN (WARFARIN SODIUM) [Concomitant]
  4. HYDROCHLOROTHIAZIDE (HYDROCHLOROTHIAZIDE) [Concomitant]
  5. CITALOPRAM (CITALOPRAM) [Concomitant]
  6. AMLODIPINE (AMLODIPINE) [Concomitant]
  7. CALTRATE (CALCIUM CARBONATE) [Concomitant]
  8. AVODART (DUTASTERIDE) [Concomitant]
  9. SORBITOL (SORBITOL) [Concomitant]

REACTIONS (3)
  - Pleural effusion [None]
  - Rash pruritic [None]
  - Pruritus [None]
